FAERS Safety Report 18169265 (Version 1)
Quarter: 2020Q3

REPORT INFORMATION
  Report Type: Spontaneous
  Country: EG (occurrence: EG)
  Receive Date: 20200818
  Receipt Date: 20200818
  Transmission Date: 20201103
  Serious: Yes (Death, Hospitalization, Other)
  Sender: FDA-Public Use
  Company Number: EG-ROCHE-2658856

PATIENT
  Age: 41 Year
  Sex: Male

DRUGS (11)
  1. AZITHROMYCIN ANHYDROUS. [Suspect]
     Active Substance: AZITHROMYCIN ANHYDROUS
     Indication: COVID-19
     Route: 065
     Dates: start: 20200708
  2. ALUVIA [Suspect]
     Active Substance: LOPINAVIR\RITONAVIR
     Indication: COVID-19
     Dosage: FREQUENCY: 2 TAB./12 HRS. FOR 12 DAYS
     Route: 048
     Dates: start: 20200715
  3. LACTOFERRIN [Suspect]
     Active Substance: LACTOFERRIN
     Indication: COVID-19
     Route: 065
     Dates: start: 20200708
  4. ACTEMRA [Suspect]
     Active Substance: TOCILIZUMAB
     Indication: COVID-19
     Dosage: FREQUENCY: 3 CONSECUTIVE DOSES EVERY 12 HRS. THEN THE 4TH AFTER BEING VENTILATED.
     Route: 065
     Dates: start: 20200708
  5. ZINC. [Suspect]
     Active Substance: ZINC
     Indication: COVID-19
     Route: 065
     Dates: start: 20200708
  6. VITAMIN C [Suspect]
     Active Substance: ASCORBIC ACID
     Indication: COVID-19
     Route: 065
     Dates: start: 20200708
  7. PARACETAMOL [Suspect]
     Active Substance: ACETAMINOPHEN
     Indication: COVID-19
     Route: 065
     Dates: start: 20200708
  8. HYDROXYCHLOROQUINE [Suspect]
     Active Substance: HYDROXYCHLOROQUINE
     Dosage: FREQUENCY: 400MG/12 HRS FOR 1 DAY THEN 200MG/12 HRS FOR THE NEXT DAYS.
     Route: 065
  9. CLEXANE [Suspect]
     Active Substance: ENOXAPARIN SODIUM
     Indication: COVID-19
     Route: 065
     Dates: start: 20200708
  10. PREDNISOLONE. [Suspect]
     Active Substance: PREDNISOLONE
     Indication: COVID-19
     Route: 065
     Dates: start: 20200708
  11. HYDROXYCHLOROQUINE [Suspect]
     Active Substance: HYDROXYCHLOROQUINE
     Indication: COVID-19
     Dosage: FREQUENCY: 400MG/12 HRS FOR 1 DAY
     Route: 065
     Dates: start: 20200708

REACTIONS (11)
  - Hallucination [Unknown]
  - Delirium [Unknown]
  - Death [Fatal]
  - Oral candidiasis [Unknown]
  - Acidosis [Unknown]
  - Product use in unapproved indication [Unknown]
  - Product use issue [Unknown]
  - Pneumocystis jirovecii pneumonia [Unknown]
  - Off label use [Unknown]
  - Nightmare [Unknown]
  - Acute respiratory distress syndrome [Unknown]

NARRATIVE: CASE EVENT DATE: 20200801
